FAERS Safety Report 13835277 (Version 2)
Quarter: 2017Q4

REPORT INFORMATION
  Report Type: Spontaneous
  Country: FR (occurrence: FR)
  Receive Date: 20170804
  Receipt Date: 20171102
  Transmission Date: 20180320
  Serious: Yes (Other)
  Sender: FDA-Public Use
  Company Number: FR-FRESENIUS KABI-FK201706668

PATIENT
  Age: 21 Year
  Sex: Female

DRUGS (6)
  1. POLARAMINE [Concomitant]
     Active Substance: DEXCHLORPHENIRAMINE MALEATE
     Indication: PREMEDICATION
     Route: 042
     Dates: start: 20170710, end: 20170710
  2. PACLITAXEL 6MG/ML CONCENTRATE FOR SOLUTION FOR INFUSION [Suspect]
     Active Substance: PACLITAXEL
     Indication: OVARIAN CANCER STAGE III
     Route: 042
     Dates: start: 20170710, end: 20170710
  3. ONDANSETRON ACCORD [Concomitant]
     Active Substance: ONDANSETRON
     Indication: PREMEDICATION
     Route: 042
     Dates: start: 20170710, end: 20170710
  4. METHYLPREDNISOLONE MYLAN [Concomitant]
     Active Substance: METHYLPREDNISOLONE
     Indication: PREMEDICATION
     Route: 042
     Dates: start: 20170710, end: 20170710
  5. AZANTAC [Concomitant]
     Active Substance: RANITIDINE HYDROCHLORIDE
     Indication: PREMEDICATION
     Route: 042
     Dates: start: 20170710, end: 20170710
  6. CARBOPLATINE HOSPIRA [Concomitant]
     Active Substance: CARBOPLATIN
     Indication: CERVIX CARCINOMA STAGE IV
     Route: 042
     Dates: start: 20170710, end: 20170710

REACTIONS (3)
  - Hypersensitivity [Not Recovered/Not Resolved]
  - Asphyxia [Not Recovered/Not Resolved]
  - Laryngeal discomfort [Not Recovered/Not Resolved]

NARRATIVE: CASE EVENT DATE: 20170710
